FAERS Safety Report 7932141-6 (Version None)
Quarter: 2011Q4

REPORT INFORMATION
  Report Type: 
  Country: None (occurrence: None)
  Receive Date: 20111121
  Receipt Date: 20110725
  Transmission Date: 20120403
  Serious: No
  Sender: FDA-Public Use
  Company Number: US-AMGEN-USASP2011037884

PATIENT
  Age: 18 Year
  Sex: Male

DRUGS (1)
  1. ENBREL [Suspect]
     Indication: ANKYLOSING SPONDYLITIS
     Dosage: 50 MG, QWK
     Dates: start: 20100601, end: 20100608

REACTIONS (9)
  - ACNE [None]
  - INJECTION SITE HAEMATOMA [None]
  - ANKYLOSING SPONDYLITIS [None]
  - HEADACHE [None]
  - INJECTION SITE PAIN [None]
  - DRUG INEFFECTIVE [None]
  - VOMITING [None]
  - PYREXIA [None]
  - PNEUMONIA [None]
